FAERS Safety Report 9073675 (Version 1)
Quarter: 2013Q1

REPORT INFORMATION
  Report Type: Report from Study
  Country: US (occurrence: US)
  Receive Date: 20130129
  Receipt Date: 20130129
  Transmission Date: 20140127
  Serious: No
  Sender: FDA-Public Use
  Company Number: US-ABBOTT-12P-163-0918949-00

PATIENT
  Age: 38 Year
  Sex: Male

DRUGS (6)
  1. HUMIRA 40 MG/0.8 ML PEN [Suspect]
     Indication: PSORIASIS
     Dates: start: 20120219
  2. HUMIRA 40 MG/0.8 ML PEN [Suspect]
  3. HUMIRA 40 MG/0.8 ML PEN [Suspect]
     Dates: start: 2011, end: 201202
  4. LOSARTAN [Concomitant]
     Indication: BLOOD PRESSURE
  5. WELLBUTRIN [Concomitant]
     Indication: DEPRESSION
  6. UNKNOWN CREAMS [Concomitant]
     Indication: PSORIASIS

REACTIONS (4)
  - Epididymitis [Unknown]
  - Psoriasis [Not Recovered/Not Resolved]
  - Drug ineffective [Unknown]
  - Inguinal hernia [Unknown]
